FAERS Safety Report 8132043-9 (Version None)
Quarter: 2012Q1

REPORT INFORMATION
  Report Type: 
  Country: None (occurrence: None)
  Receive Date: 20120213
  Receipt Date: 20120203
  Transmission Date: 20120608
  Serious: Yes (Death)
  Sender: FDA-Public Use
  Company Number: US-MYLANLABS-2012S1002736

PATIENT
  Age: 47 Year
  Sex: Male
  Weight: 110.68 kg

DRUGS (9)
  1. SERTRALINE HYDROCHLORIDE [Concomitant]
  2. SUMATRIPTAN [Concomitant]
  3. LORAZEPAM [Concomitant]
  4. PAROXETINE [Concomitant]
  5. GEMFIBROZIL [Concomitant]
  6. FENTANYL-100 [Suspect]
     Dosage: Q72H
     Route: 062
  7. TEMAZEPAM [Concomitant]
     Dosage: 30MG TO 60MG HS
  8. LORAZEPAM [Concomitant]
  9. CARISOPRODOL [Concomitant]

REACTIONS (1)
  - TOXICITY TO VARIOUS AGENTS [None]
